FAERS Safety Report 19687950 (Version 1)
Quarter: 2021Q3

REPORT INFORMATION
  Report Type: Spontaneous
  Country: US (occurrence: US)
  Receive Date: 20210811
  Receipt Date: 20210811
  Transmission Date: 20211014
  Serious: No
  Sender: FDA-Public Use
  Company Number: US-GALDERMA-US2021014191

PATIENT

DRUGS (6)
  1. DIFFERIN GEL [Suspect]
     Active Substance: ADAPALENE
     Dosage: 1 DOSAGE FORM, 4 TIMES A WEEK
     Route: 061
  2. CETAPHIL MOISTURIZING CREAM [Suspect]
     Active Substance: COSMETICS
     Indication: PRODUCT USED FOR UNKNOWN INDICATION
     Dosage: 1 DOSAGE FORM
     Route: 061
     Dates: start: 202106
  3. DIFFERIN GEL [Suspect]
     Active Substance: ADAPALENE
     Dosage: 1 DOSAGE FORM, TIW, 3 NIGHTS A WEEK
     Route: 061
  4. UNSPECIFIED BODY WASH [Concomitant]
     Indication: PRODUCT USED FOR UNKNOWN INDICATION
  5. DIFFERIN GEL [Suspect]
     Active Substance: ADAPALENE
     Indication: ACNE
     Dosage: 1 DOSAGE FORM, BIW, TWICE A WEEK
     Route: 061
     Dates: start: 20210610
  6. DIFFERIN GEL [Suspect]
     Active Substance: ADAPALENE
     Dosage: 1 DOSAGE FORM, QD, EVERY NIGHT
     Route: 061

REACTIONS (2)
  - Off label use [Recovered/Resolved]
  - Intentional underdose [Recovered/Resolved]

NARRATIVE: CASE EVENT DATE: 20210610
